FAERS Safety Report 9257241 (Version 1)
Quarter: 2013Q2

REPORT INFORMATION
  Report Type: Report from Study
  Country: AR (occurrence: AR)
  Receive Date: 20130426
  Receipt Date: 20130426
  Transmission Date: 20140414
  Serious: Yes (Other)
  Sender: FDA-Public Use
  Company Number: PHHY2013AR040720

PATIENT
  Age: 67 Year
  Sex: Female

DRUGS (3)
  1. ONBREZ [Suspect]
     Indication: CHRONIC OBSTRUCTIVE PULMONARY DISEASE
     Dosage: 1 DF, UNK
  2. ONBREZ [Suspect]
     Indication: EMPHYSEMA
  3. ONBREZ [Suspect]
     Indication: OFF LABEL USE

REACTIONS (1)
  - Skin reaction [Recovering/Resolving]
